FAERS Safety Report 8746126 (Version 3)
Quarter: 2012Q4

REPORT INFORMATION
  Report Type: 
  Country: GB (occurrence: GB)
  Receive Date: 20120827
  Receipt Date: 20120921
  Transmission Date: 20130627
  Serious: Yes (Other)
  Sender: FDA-Public Use
  Company Number: PHFR2012GB004638

PATIENT
  Age: 76 Year
  Sex: Male

DRUGS (2)
  1. CLOZARIL [Suspect]
     Indication: SCHIZOPHRENIA
     Dosage: 12.5 mg
     Route: 048
     Dates: start: 20120813, end: 20120813
  2. CLOPIXOL DEPOT [Concomitant]
     Dosage: 200 mg, UNK

REACTIONS (3)
  - Dysstasia [Recovered/Resolved]
  - Dizziness [Recovered/Resolved]
  - Salivary hypersecretion [Recovered/Resolved]
